FAERS Safety Report 17565528 (Version 5)
Quarter: 2020Q2

REPORT INFORMATION
  Report Type: Spontaneous
  Country: US (occurrence: US)
  Receive Date: 20200320
  Receipt Date: 20200615
  Transmission Date: 20200713
  Serious: No
  Sender: FDA-Public Use
  Company Number: US-VERTEX PHARMACEUTICALS-2020-005515

PATIENT
  Age: 12 Year
  Sex: Female
  Weight: 45 kg

DRUGS (14)
  1. AZITHROMYCIN ANHYDROUS. [Concomitant]
     Active Substance: AZITHROMYCIN ANHYDROUS
     Dosage: 500 MG
     Route: 048
  2. AZTREONAM. [Concomitant]
     Active Substance: AZTREONAM
     Dosage: 75 MG, TID
  3. CYPROHEPTADINE. [Concomitant]
     Active Substance: CYPROHEPTADINE
  4. CETIRIZINE [Concomitant]
     Active Substance: CETIRIZINE HYDROCHLORIDE
     Indication: HYPERSENSITIVITY
     Dosage: UNK UNK, QD
     Route: 048
  5. DORNASA ALFA [Concomitant]
     Dosage: 2.5MG/2.5 ML
  6. ALBUTEROL [SALBUTAMOL] [Concomitant]
     Active Substance: ALBUTEROL
     Indication: PHYSIOTHERAPY CHEST
  7. FLUTICASONE. [Concomitant]
     Active Substance: FLUTICASONE
     Dosage: FLOVENT HFA
  8. FLUTICASONE. [Concomitant]
     Active Substance: FLUTICASONE
     Dosage: 50 NASAL SPRAY
  9. CREON [Concomitant]
     Active Substance: PANCRELIPASE AMYLASE\PANCRELIPASE LIPASE\PANCRELIPASE PROTEASE
     Dosage: 24000 UNITS, 4 CAPSULE , 3 WITH SNACKS
     Route: 048
  10. VITAMIN D [ERGOCALCIFEROL] [Concomitant]
     Active Substance: ERGOCALCIFEROL
  11. TRIKAFTA [Suspect]
     Active Substance: ELEXACAFTOR\IVACAFTOR\TEZACAFTOR
     Indication: CYSTIC FIBROSIS
     Dosage: 2 ORANGE TABLETS (100MG ELEXA/50MG TEZA/75MG IVA) AM AND 1 BLUE TABLET (150MG IVA) PM
     Route: 048
     Dates: start: 202002
  12. PEDIASURE FIBRE [Concomitant]
  13. ALBUTEROL [SALBUTAMOL] [Concomitant]
     Active Substance: ALBUTEROL
     Indication: WHEEZING
     Dosage: 2 PUFF, 90 MICROGRAM, QID
  14. SODIUM CHLORIDE. [Concomitant]
     Active Substance: SODIUM CHLORIDE
     Dosage: UNK, BID

REACTIONS (7)
  - Patient uncooperative [Recovered/Resolved]
  - Sinus headache [Recovered/Resolved]
  - Nasopharyngitis [Recovered/Resolved]
  - Pyrexia [Recovered/Resolved]
  - Abdominal pain upper [Recovered/Resolved]
  - Pain in extremity [Recovering/Resolving]
  - Apathy [Recovered/Resolved]

NARRATIVE: CASE EVENT DATE: 20200227
